FAERS Safety Report 8495389-0 (Version None)
Quarter: 2012Q3

REPORT INFORMATION
  Report Type: 
  Country: None (occurrence: None)
  Receive Date: 20120709
  Receipt Date: 20120627
  Transmission Date: 20120928
  Serious: Yes (Other)
  Sender: FDA-Public Use
  Company Number: JP-VERTEX PHARMACEUTICALS INC.-AE-2012-009765

PATIENT
  Age: 59 Year
  Sex: Male

DRUGS (7)
  1. PEG-INTRON [Concomitant]
     Indication: HEPATITIS C
     Route: 058
     Dates: start: 20120420
  2. TELAVIC (TELAPREVIR) [Suspect]
     Indication: HEPATITIS C
     Route: 048
     Dates: start: 20120420
  3. LENDORMIN D [Concomitant]
     Route: 048
  4. REBETOL [Concomitant]
     Indication: HEPATITIS C
     Route: 048
     Dates: start: 20120420, end: 20120513
  5. ALLOPURINOL [Concomitant]
     Route: 048
  6. METHADERM [Concomitant]
     Route: 061
  7. REBETOL [Concomitant]
     Route: 048
     Dates: start: 20120514

REACTIONS (1)
  - RENAL IMPAIRMENT [None]
